FAERS Safety Report 5477104-8 (Version None)
Quarter: 2007Q3

REPORT INFORMATION
  Report Type: 
  Country: None (occurrence: None)
  Receive Date: 20070831
  Receipt Date: 20070711
  Transmission Date: 20080115
  Serious: Yes (Hospitalization)
  Sender: FDA-Public Use
  Company Number: US-JNJFOC-20070601263

PATIENT
  Age: 70 Year
  Sex: Male
  Weight: 53.0709 kg

DRUGS (7)
  1. DACOGEN [Suspect]
     Indication: MYELODYSPLASTIC SYNDROME
     Dosage: 32 MG, INTRAVENOUS
     Route: 042
     Dates: start: 20070409, end: 20070413
  2. CARDIZEM CD [Concomitant]
  3. ATROVENT [Concomitant]
  4. SEREVENT [Concomitant]
  5. CLARINEX [Concomitant]
  6. SINGULAIR [Concomitant]
  7. ALBUTEROL [Concomitant]

REACTIONS (2)
  - NEUTROPENIA [None]
  - PYREXIA [None]
